FAERS Safety Report 5345109-3 (Version None)
Quarter: 2007Q2

REPORT INFORMATION
  Report Type: 
  Country: None (occurrence: None)
  Receive Date: 20070424
  Receipt Date: 20061110
  Transmission Date: 20071010
  Serious: Yes (Life-Threatening)
  Sender: FDA-Public Use
  Company Number: WAES 0611USA03553

PATIENT
  Age: 54 Year
  Sex: Female

DRUGS (1)
  1. PRINZIDE [Suspect]
     Indication: HYPERTENSION
     Dosage: PO
     Route: 048
     Dates: start: 20060918, end: 20060919

REACTIONS (1)
  - ANGIOEDEMA [None]
